FAERS Safety Report 15378425 (Version 1)
Quarter: 2018Q3

REPORT INFORMATION
  Report Type: Spontaneous
  Country: US (occurrence: US)
  Receive Date: 20180913
  Receipt Date: 20180913
  Transmission Date: 20181010
  Serious: No
  Sender: FDA-Public Use
  Company Number: US-TEVA-2018-US-954181

PATIENT

DRUGS (1)
  1. METOPROLOL SUCC ER [Suspect]
     Active Substance: METOPROLOL SUCCINATE
     Route: 065

REACTIONS (3)
  - Migraine [Unknown]
  - Product storage error [Unknown]
  - Palpitations [Unknown]
